FAERS Safety Report 14011663 (Version 1)
Quarter: 2017Q3

REPORT INFORMATION
  Report Type: Spontaneous
  Country: RU (occurrence: RU)
  Receive Date: 20170926
  Receipt Date: 20170926
  Transmission Date: 20171128
  Serious: Yes (Life-Threatening, Hospitalization, Other)
  Sender: FDA-Public Use
  Company Number: RU-ASTRAZENECA-2017SE97372

PATIENT
  Age: 80 Year
  Sex: Female
  Weight: 64 kg

DRUGS (10)
  1. BRILINTA [Suspect]
     Active Substance: TICAGRELOR
     Indication: STENT PLACEMENT
     Route: 048
     Dates: start: 201503, end: 201603
  2. LIPRIMAR [Concomitant]
     Active Substance: ATORVASTATIN CALCIUM
  3. BRILINTA [Suspect]
     Active Substance: TICAGRELOR
     Indication: STENT PLACEMENT
     Route: 048
     Dates: start: 201701
  4. VALS [Concomitant]
  5. CARDIOMAGNYL [Concomitant]
     Active Substance: ASPIRIN\MAGNESIUM HYDROXIDE
  6. IVABRADINE [Concomitant]
     Active Substance: IVABRADINE
  7. LERCANIDIPINE [Concomitant]
     Active Substance: LERCANIDIPINE
  8. BETAHISTINE [Concomitant]
     Active Substance: BETAHISTINE
  9. BRILINTA [Suspect]
     Active Substance: TICAGRELOR
     Indication: ANGINA UNSTABLE
     Route: 048
     Dates: start: 201503, end: 201603
  10. BRILINTA [Suspect]
     Active Substance: TICAGRELOR
     Indication: ANGINA UNSTABLE
     Route: 048
     Dates: start: 201701

REACTIONS (8)
  - Road traffic accident [Unknown]
  - Haemoglobin decreased [Unknown]
  - Head injury [Recovered/Resolved with Sequelae]
  - Contusion [Not Recovered/Not Resolved]
  - Traumatic haemorrhage [Recovered/Resolved]
  - Product use in unapproved indication [Unknown]
  - Off label use [Unknown]
  - Dizziness [Not Recovered/Not Resolved]

NARRATIVE: CASE EVENT DATE: 201503
